FAERS Safety Report 8250547-5 (Version None)
Quarter: 2012Q2

REPORT INFORMATION
  Report Type: 
  Country: None (occurrence: None)
  Receive Date: 20120402
  Receipt Date: 20120327
  Transmission Date: 20120825
  Serious: Yes (Other)
  Sender: FDA-Public Use
  Company Number: US-PFIZER INC-2012078835

PATIENT
  Sex: Female
  Weight: 65.306 kg

DRUGS (7)
  1. LANTUS [Concomitant]
     Indication: DIABETES MELLITUS
     Dosage: 30 UNITS, 2X/DAY
  2. LYRICA [Suspect]
     Indication: DIABETIC NEUROPATHY
     Dosage: UNK, 1X/DAY
     Route: 048
  3. LYRICA [Suspect]
     Indication: PAIN
  4. HUMALOG [Concomitant]
     Indication: DIABETES MELLITUS
     Dosage: 5UNITS BEFORE MEALS
  5. ALLEGRA [Concomitant]
     Indication: HYPERSENSITIVITY
     Dosage: UNK
  6. BENADRYL [Concomitant]
     Indication: HYPERSENSITIVITY
     Dosage: UNK
  7. OMEPRAZOLE [Concomitant]
     Indication: GASTROOESOPHAGEAL REFLUX DISEASE
     Dosage: UNK

REACTIONS (8)
  - STRABISMUS [None]
  - SPEECH DISORDER [None]
  - BLOOD GLUCOSE INCREASED [None]
  - EYE DISORDER [None]
  - DYSPHONIA [None]
  - HYPOAESTHESIA [None]
  - PARAESTHESIA [None]
  - GAIT DISTURBANCE [None]
